FAERS Safety Report 21556958 (Version 2)
Quarter: 2022Q4

REPORT INFORMATION
  Report Type: Spontaneous
  Country: SE (occurrence: SE)
  Receive Date: 20221104
  Receipt Date: 20221109
  Transmission Date: 20230113
  Serious: Yes (Other)
  Sender: FDA-Public Use
  Company Number: SE-BAUSCH-BL-2022-024784

PATIENT
  Age: 66 Year
  Sex: Male

DRUGS (3)
  1. ELIDEL [Suspect]
     Active Substance: PIMECROLIMUS
     Indication: Rosacea
     Dosage: USED ONCE A DAY AFTER SHOWER
     Route: 003
     Dates: start: 201311, end: 202208
  2. ELIDEL [Suspect]
     Active Substance: PIMECROLIMUS
     Indication: Off label use
  3. JANUMET [Concomitant]
     Active Substance: METFORMIN HYDROCHLORIDE\SITAGLIPTIN PHOSPHATE
     Indication: Product used for unknown indication

REACTIONS (2)
  - Drug dependence [Unknown]
  - Off label use [Unknown]

NARRATIVE: CASE EVENT DATE: 20131101
